FAERS Safety Report 5090697-8 (Version None)
Quarter: 2006Q3

REPORT INFORMATION
  Report Type: 
  Country: None (occurrence: None)
  Receive Date: 20060822
  Receipt Date: 20060809
  Transmission Date: 20061208
  Serious: Yes (Life-Threatening, Hospitalization)
  Sender: FDA-Public Use
  Company Number: 200610378

PATIENT
  Age: 56 Year
  Sex: Male
  Weight: 81 kg

DRUGS (7)
  1. SANDOGLOBULIN [Suspect]
     Indication: IDIOPATHIC THROMBOCYTOPENIC PURPURA
     Dosage: 24 G DAILY IV; 36 G DAILY IV
     Route: 042
     Dates: start: 20060616, end: 20060617
  2. SANDOGLOBULIN [Suspect]
     Indication: IDIOPATHIC THROMBOCYTOPENIC PURPURA
     Dosage: 24 G DAILY IV; 36 G DAILY IV
     Route: 042
     Dates: start: 20060618, end: 20060618
  3. DAONIL [Concomitant]
  4. GLUCOPHAGE [Concomitant]
  5. APROVEL [Concomitant]
  6. MOPRAL [Concomitant]
  7. CORTANCYL [Concomitant]

REACTIONS (7)
  - DIALYSIS [None]
  - DIARRHOEA [None]
  - DRUG INTERACTION POTENTIATION [None]
  - HEADACHE [None]
  - METABOLIC ACIDOSIS [None]
  - RENAL FAILURE ACUTE [None]
  - RENAL TUBULAR NECROSIS [None]
